FAERS Safety Report 6194304-2 (Version None)
Quarter: 2009Q2

REPORT INFORMATION
  Report Type: 
  Country: None (occurrence: None)
  Receive Date: 20090519
  Receipt Date: 20090515
  Transmission Date: 20091009
  Serious: Yes (Hospitalization)
  Sender: FDA-Public Use
  Company Number: AU-BRISTOL-MYERS SQUIBB COMPANY-14626253

PATIENT
  Age: 49 Year
  Sex: Female
  Weight: 58 kg

DRUGS (10)
  1. ATENOLOL [Suspect]
     Dates: end: 20061210
  2. IRBESARTAN [Suspect]
     Dates: end: 20061210
  3. IRBESARTAN + HCTZ [Suspect]
     Dates: end: 20061212
  4. ROPINIROLE [Suspect]
     Indication: SENSORY DISTURBANCE
     Dosage: ROPINIROLE HYDROCHLORIDE
     Route: 048
     Dates: start: 20060815, end: 20061214
  5. ATORVASTATIN [Concomitant]
  6. FRUSEMIDE [Concomitant]
  7. OXAZEPAM [Concomitant]
  8. PANTOPRAZOLE SODIUM [Concomitant]
  9. PROCHLORPERAZINE MALEATE [Concomitant]
  10. LEVOTHYROXINE SODIUM [Concomitant]

REACTIONS (7)
  - BLOOD CREATININE INCREASED [None]
  - HYPOTENSION [None]
  - MALAISE [None]
  - NAUSEA [None]
  - RENAL IMPAIRMENT [None]
  - VOMITING [None]
  - WEIGHT DECREASED [None]
